FAERS Safety Report 19898331 (Version 2)
Quarter: 2021Q4

REPORT INFORMATION
  Report Type: Spontaneous
  Country: ES (occurrence: ES)
  Receive Date: 20210930
  Receipt Date: 20211012
  Transmission Date: 20220303
  Serious: Yes (Hospitalization)
  Sender: FDA-Public Use
  Company Number: ES-UNICHEM PHARMACEUTICALS (USA) INC-UCM202109-000865

PATIENT
  Age: 2 Year
  Sex: Male
  Weight: 15 kg

DRUGS (4)
  1. TIZANIDINE [Suspect]
     Active Substance: TIZANIDINE
     Indication: Overdose
     Dosage: 0.15 MG/KG/DAY
  2. TIZANIDINE [Suspect]
     Active Substance: TIZANIDINE
     Indication: Quadriplegia
     Dosage: 1.6 MG/KG/DAY
  3. CLONAZEPAM [Concomitant]
     Active Substance: CLONAZEPAM
     Indication: Quadriplegia
     Dosage: 0.3-0.4 MG TWICE DAILY
  4. MONTELUKAST [Concomitant]
     Active Substance: MONTELUKAST SODIUM
     Indication: Wheezing

REACTIONS (5)
  - Renal failure [Recovered/Resolved]
  - Hepatic failure [Recovered/Resolved]
  - Cardiac failure [Recovered/Resolved]
  - Dehydration [Recovered/Resolved]
  - Overdose [Unknown]
